FAERS Safety Report 18062837 (Version 1)
Quarter: 2020Q3

REPORT INFORMATION
  Report Type: Spontaneous
  Country: US (occurrence: US)
  Receive Date: 20200723
  Receipt Date: 20200723
  Transmission Date: 20201103
  Serious: No
  Sender: FDA-Public Use
  Company Number: US-IGSA-SR10009219

PATIENT
  Age: 10 Year
  Sex: Male
  Weight: 44.65 kg

DRUGS (43)
  1. VORICONAZOLE. [Concomitant]
     Active Substance: VORICONAZOLE
     Dosage: 188 ?G, BID
  2. NALOXONE [Concomitant]
     Active Substance: NALOXONE
     Dosage: 44.65 ?G, PRN
     Route: 042
  3. PRISMASATE BK0/3.5 [Concomitant]
     Dosage: 15 MEQ, PRN
  4. ALBUMIN (HUMAN) [Concomitant]
     Active Substance: ALBUMIN HUMAN
  5. MEROPENEM. [Concomitant]
     Active Substance: MEROPENEM
     Dosage: 1000 MG, TID
     Route: 042
  6. HYDROMORPHONE                      /00080902/ [Concomitant]
     Active Substance: HYDROMORPHONE HYDROCHLORIDE
     Dosage: 0.27 MG, UNK
  7. MAGNESIUM SULFATE. [Concomitant]
     Active Substance: MAGNESIUM SULFATE
     Dosage: 2000 MG, PRN
     Route: 042
  8. MELATONIN                          /07129401/ [Concomitant]
     Active Substance: CALCIUM\IRON\MELATONIN\PYRIDOXINE HYDROCHLORIDE
     Dosage: 3 MG, PRN
  9. DEXMEDETOMIDINE. [Concomitant]
     Active Substance: DEXMEDETOMIDINE
     Dosage: 2 ?G/KG, UNK
  10. GAMUNEX?C [Suspect]
     Active Substance: HUMAN IMMUNOGLOBULIN G
     Indication: HYPOGAMMAGLOBULINAEMIA
     Dosage: 22.5 G, Q.2WK.
     Route: 042
     Dates: start: 20190906, end: 20190906
  11. SCOPOLAMINE                        /00008701/ [Concomitant]
     Active Substance: SCOPOLAMINE
     Dosage: 1.5 MG, Q.3D.
  12. AMBISOME [Concomitant]
     Active Substance: AMPHOTERICIN B
     Dosage: 223 MG, QD
     Route: 042
  13. DIAZEPAM. [Concomitant]
     Active Substance: DIAZEPAM
     Dosage: 1.5 MG, Q.4H.
  14. METHYLPREDNISOLONE. [Concomitant]
     Active Substance: METHYLPREDNISOLONE
     Dosage: 45 MG, QD
     Route: 042
  15. PENTAMIDINE [Concomitant]
     Active Substance: PENTAMIDINE
     Dosage: 179 MG, Q.2WK.
     Route: 042
  16. BENADRYL [Concomitant]
     Active Substance: DIPHENHYDRAMINE HYDROCHLORIDE
     Dosage: 45 MG, PRN
  17. PANTOPRAZOLE [Concomitant]
     Active Substance: PANTOPRAZOLE
     Dosage: 40 MG, QD
     Route: 042
  18. SARGRAMOSTIM [Concomitant]
     Active Substance: SARGRAMOSTIM
     Dosage: 335 ?G, QD
     Route: 042
  19. OCULAR LUBRICANT                   /00445101/ [Concomitant]
     Dosage: UNK UNK, PRN
  20. LORAZEPAM. [Concomitant]
     Active Substance: LORAZEPAM
     Dosage: 0.75 MG, PRN
     Route: 042
  21. NOREPINEPHRINE. [Concomitant]
     Active Substance: NOREPINEPHRINE
     Dosage: 0.05 ?G/KG, UNK
  22. GAMUNEX?C [Suspect]
     Active Substance: HUMAN IMMUNOGLOBULIN G
     Indication: APLASTIC ANAEMIA
     Dosage: 22.5 G, Q.2WK.
     Route: 042
     Dates: start: 201906, end: 20190906
  23. NYSTATIN. [Concomitant]
     Active Substance: NYSTATIN
     Dosage: 1 IU/KG, TID
     Route: 061
  24. FILGRASTIM [Concomitant]
     Active Substance: FILGRASTIM
     Dosage: 470 ?G, QD
     Route: 042
  25. TYLENOL [Concomitant]
     Active Substance: ACETAMINOPHEN
     Dosage: 650 MG, PRN
     Route: 042
  26. ALBUTEROL                          /00139501/ [Concomitant]
     Active Substance: ALBUTEROL
     Dosage: UNK UNK, PRN
  27. FENTANYL                           /00174602/ [Concomitant]
     Active Substance: FENTANYL
     Dosage: 90 ?G, PRN
     Route: 042
  28. SUCRALFATE. [Concomitant]
     Active Substance: SUCRALFATE
     Dosage: 500 MG, PRN
  29. SYNERCID [Concomitant]
     Active Substance: DALFOPRISTIN\QUINUPRISTIN
     Dosage: 335 MG, BID
     Route: 042
  30. FOSCARNET [Concomitant]
     Active Substance: FOSCARNET
     Dosage: 3000 MG, QD
     Route: 042
  31. BACITRACIN                         /00163902/ [Concomitant]
     Dosage: UNK UNK, PRN
     Route: 061
  32. DRONABINOL. [Concomitant]
     Active Substance: DRONABINOL
     Dosage: 2.5 MG, PRN
  33. NALBUPHINE [Concomitant]
     Active Substance: NALBUPHINE
     Dosage: 0.45 MG, PRN
     Route: 042
  34. INSULIN REGULAR                    /01223201/ [Concomitant]
     Active Substance: INSULIN BEEF
     Dosage: 0.08 IU/KG, UNK
  35. PARENTERAL NUTRITION [Concomitant]
     Active Substance: AMINO ACIDS\DEXTROSE\ELECTROLYTES NOS
     Dosage: 1080 ML, QD
  36. PHENYLEPHRINE [Concomitant]
     Active Substance: PHENYLEPHRINE HYDROCHLORIDE
     Dosage: 0.05 ?G/KG, UNK
  37. MIRALAX [Concomitant]
     Active Substance: POLYETHYLENE GLYCOL 3350
     Dosage: 17 G, QD
  38. HEPARIN [Concomitant]
     Active Substance: HEPARIN SODIUM
     Dosage: 90 U, UNK
  39. CYCLOSPORIN [Concomitant]
     Active Substance: CYCLOSPORINE
     Dosage: 70 MG, UNK
     Route: 042
  40. ONDANSETRON                        /00955302/ [Concomitant]
     Active Substance: ONDANSETRON HYDROCHLORIDE
     Dosage: 6 MG, PRN
  41. DOCUSATE [Concomitant]
     Active Substance: DOCUSATE
     Dosage: 200 MG, QD
  42. HEPARIN [Concomitant]
     Active Substance: HEPARIN SODIUM
     Dosage: 50 IU, PRN
  43. HYDRALAZINE [Concomitant]
     Active Substance: HYDRALAZINE HYDROCHLORIDE
     Dosage: 8 MG, PRN
     Route: 042

REACTIONS (1)
  - Aspergillus test positive [Not Recovered/Not Resolved]

NARRATIVE: CASE EVENT DATE: 20190913
